FAERS Safety Report 4953550-3 (Version None)
Quarter: 2006Q1

REPORT INFORMATION
  Report Type: 
  Country: None (occurrence: None)
  Receive Date: 20060324
  Receipt Date: 20051208
  Transmission Date: 20060701
  Serious: Yes (Hospitalization, Disabling, Other)
  Sender: FDA-Public Use
  Company Number: US-MERCK-0512USA01512

PATIENT
  Age: 54 Year
  Sex: Female
  Weight: 71 kg

DRUGS (2)
  1. VIOXX [Suspect]
     Indication: NECK PAIN
     Route: 048
     Dates: start: 19990701, end: 20030301
  2. VIOXX [Suspect]
     Indication: BACK PAIN
     Route: 048
     Dates: start: 19990701, end: 20030301

REACTIONS (6)
  - BACK INJURY [None]
  - BACK PAIN [None]
  - BUTTOCK PAIN [None]
  - ISCHAEMIC STROKE [None]
  - NECK INJURY [None]
  - PAIN IN EXTREMITY [None]
